FAERS Safety Report 7832326-3 (Version None)
Quarter: 2011Q4

REPORT INFORMATION
  Report Type: 
  Country: None (occurrence: None)
  Receive Date: 20111022
  Receipt Date: 20101112
  Transmission Date: 20120403
  Serious: No
  Sender: FDA-Public Use
  Company Number: US-BAYER-201041498NA

PATIENT
  Sex: Female

DRUGS (2)
  1. COPD MEDICATION [Concomitant]
  2. CIPROFLOXACIN [Suspect]

REACTIONS (1)
  - FUNGAL INFECTION [None]
